FAERS Safety Report 7350497-2 (Version None)
Quarter: 2011Q1

REPORT INFORMATION
  Report Type: 
  Country: None (occurrence: None)
  Receive Date: 20110314
  Receipt Date: 20110309
  Transmission Date: 20110831
  Serious: Yes (Death, Hospitalization)
  Sender: FDA-Public Use
  Company Number: CN-ASTRAZENECA-2010SE37369

PATIENT
  Age: 87 Year
  Sex: Male

DRUGS (3)
  1. NITROGLYCERINE TYPE DRUG [Concomitant]
     Dates: start: 20100806, end: 20100806
  2. ASPIRIN [Concomitant]
     Dates: start: 20100806, end: 20100806
  3. BETALOC ZOK [Suspect]
     Indication: CORONARY ARTERY DISEASE
     Route: 048
     Dates: start: 20100806, end: 20100806

REACTIONS (2)
  - SUDDEN DEATH [None]
  - CARDIO-RESPIRATORY ARREST [None]
